FAERS Safety Report 18888011 (Version 3)
Quarter: 2021Q1

REPORT INFORMATION
  Report Type: Spontaneous
  Country: JP (occurrence: JP)
  Receive Date: 20210212
  Receipt Date: 20210225
  Transmission Date: 20210420
  Serious: No
  Sender: FDA-Public Use
  Company Number: JP-JNJFOC-20210212812

PATIENT
  Age: 6 Decade
  Sex: Male

DRUGS (5)
  1. XEPLION [Suspect]
     Active Substance: PALIPERIDONE PALMITATE
     Route: 030
     Dates: start: 20210212
  2. XEPLION [Suspect]
     Active Substance: PALIPERIDONE PALMITATE
  3. LODOPIN [ZOTEPINE] [Suspect]
     Active Substance: ZOTEPINE
     Route: 048
     Dates: start: 202102
  4. XEPLION [Suspect]
     Active Substance: PALIPERIDONE PALMITATE
     Indication: SCHIZOPHRENIA
     Route: 030
     Dates: start: 20210129, end: 20210129
  5. LODOPIN [ZOTEPINE] [Suspect]
     Active Substance: ZOTEPINE
     Indication: SCHIZOPHRENIA
     Route: 048
     Dates: start: 202102

REACTIONS (3)
  - Extrapyramidal disorder [Recovering/Resolving]
  - Contusion [Recovered/Resolved]
  - Fall [Recovered/Resolved]

NARRATIVE: CASE EVENT DATE: 2021
